FAERS Safety Report 4324568-9 (Version None)
Quarter: 2004Q1

REPORT INFORMATION
  Report Type: 
  Country: None (occurrence: None)
  Receive Date: 20040323
  Receipt Date: 20040308
  Transmission Date: 20041129
  Serious: Yes (Death)
  Sender: FDA-Public Use
  Company Number: 2004-CN-00074CN

PATIENT
  Sex: Female

DRUGS (1)
  1. FLOMAX [Suspect]
     Dosage: NR (0.4 MG) PO
     Route: 048

REACTIONS (1)
  - MYOCARDIAL INFARCTION [None]
